FAERS Safety Report 9803981 (Version 1)
Quarter: 2014Q1

REPORT INFORMATION
  Report Type: Report from Study
  Country: US (occurrence: US)
  Receive Date: 20140108
  Receipt Date: 20140108
  Transmission Date: 20141002
  Serious: Yes (Other)
  Sender: FDA-Public Use
  Company Number: US-ROCHE-1329930

PATIENT
  Sex: Female

DRUGS (1)
  1. XOLAIR [Suspect]
     Indication: PRODUCT USED FOR UNKNOWN INDICATION
     Route: 065

REACTIONS (18)
  - Malaise [Unknown]
  - Rhinorrhoea [Unknown]
  - Dyspnoea paroxysmal nocturnal [Unknown]
  - Nasal congestion [Unknown]
  - Sinusitis [Unknown]
  - Headache [Unknown]
  - Ear pain [Unknown]
  - Eczema [Unknown]
  - Rhinorrhoea [Unknown]
  - Upper-airway cough syndrome [Unknown]
  - Sinus headache [Recovering/Resolving]
  - Sneezing [Recovering/Resolving]
  - Eye pruritus [Unknown]
  - Rash [Unknown]
  - Eczema [Unknown]
  - Pruritus [Unknown]
  - Sinus headache [Unknown]
  - Erythema [Unknown]
